FAERS Safety Report 4856780-4 (Version None)
Quarter: 2005Q4

REPORT INFORMATION
  Report Type: 
  Country: None (occurrence: None)
  Receive Date: 20051219
  Receipt Date: 20050124
  Transmission Date: 20060501
  Serious: No
  Sender: FDA-Public Use
  Company Number: US-GLAXOSMITHKLINE-A0541842A

PATIENT
  Age: 37 Year
  Sex: Female

DRUGS (2)
  1. NICODERM CQ [Suspect]
     Dates: end: 20050112
  2. NICORETTE [Suspect]

REACTIONS (6)
  - ANXIETY [None]
  - BREAST SWELLING [None]
  - INTENTIONAL DRUG MISUSE [None]
  - MYALGIA [None]
  - SHOULDER PAIN [None]
  - STRESS [None]
